FAERS Safety Report 16780617 (Version 2)
Quarter: 2019Q4

REPORT INFORMATION
  Report Type: Spontaneous
  Country: US (occurrence: US)
  Receive Date: 20190906
  Receipt Date: 20191015
  Transmission Date: 20200122
  Serious: No
  Sender: FDA-Public Use
  Company Number: US-SA-2019SA219987

PATIENT
  Age: 78 Year
  Sex: Male

DRUGS (3)
  1. DUPIXENT [Suspect]
     Active Substance: DUPILUMAB
     Dosage: 300 MG, QOW
     Route: 058
     Dates: start: 2019, end: 2019
  2. TALTZ [Concomitant]
     Active Substance: IXEKIZUMAB
     Dosage: 80 MG/ML
  3. DUPIXENT [Suspect]
     Active Substance: DUPILUMAB
     Indication: PRODUCT USED FOR UNKNOWN INDICATION
     Dosage: 600 MG, 1X
     Route: 058
     Dates: start: 201907, end: 201907

REACTIONS (3)
  - Myalgia [Unknown]
  - Unevaluable event [Unknown]
  - Arthralgia [Unknown]
